FAERS Safety Report 13768030 (Version 2)
Quarter: 2017Q3

REPORT INFORMATION
  Report Type: Spontaneous
  Country: US (occurrence: US)
  Receive Date: 20170719
  Receipt Date: 20170919
  Transmission Date: 20171127
  Serious: No
  Sender: FDA-Public Use
  Company Number: US-PFIZER INC-2017310527

PATIENT
  Age: 75 Year
  Sex: Male

DRUGS (1)
  1. XELJANZ [Suspect]
     Active Substance: TOFACITINIB CITRATE
     Indication: RHEUMATOID ARTHRITIS
     Dosage: 5 MG, ALTERNATE DAY(EVERY OTHER DAY)
     Route: 048
     Dates: start: 201706

REACTIONS (5)
  - Sinusitis [Unknown]
  - Drug ineffective [Unknown]
  - Rhinorrhoea [Unknown]
  - Product use issue [Unknown]
  - Sinus pain [Unknown]
